FAERS Safety Report 12415662 (Version 3)
Quarter: 2016Q3

REPORT INFORMATION
  Report Type: Spontaneous
  Country: GB (occurrence: GB)
  Receive Date: 20160530
  Receipt Date: 20160720
  Transmission Date: 20161109
  Serious: Yes (Hospitalization, Other)
  Sender: FDA-Public Use
  Company Number: GB-AMGEN-GBRSP2016067802

PATIENT
  Age: 61 Year
  Sex: Male

DRUGS (8)
  1. METOCLOPRAMID [Concomitant]
     Active Substance: METOCLOPRAMIDE
     Dosage: 10 MG, UNK
     Dates: start: 20160427
  2. PALONOSETRON [Concomitant]
     Active Substance: PALONOSETRON
     Dosage: 300 MG, UNK
     Dates: start: 20160427
  3. DEXAMETHASONE. [Concomitant]
     Active Substance: DEXAMETHASONE
     Dosage: 20 MG (12MG + 8MG),, UNK
     Dates: start: 20160427
  4. FOLIC ACID. [Concomitant]
     Active Substance: FOLIC ACID
     Dosage: 400 MUG, UNK
     Dates: start: 20160427
  5. PEMETREXED [Concomitant]
     Active Substance: PEMETREXED
     Dosage: 775 MG, THREE WEEKLY
     Dates: start: 20160427
  6. NEULASTA [Suspect]
     Active Substance: PEGFILGRASTIM
     Indication: PRODUCT USED FOR UNKNOWN INDICATION
     Dosage: 6 MG, THREE WEEKLY
     Route: 058
     Dates: start: 20160428
  7. AVASTIN [Concomitant]
     Active Substance: BEVACIZUMAB
     Indication: MESOTHELIOMA
     Dosage: 1200 MG, THREE WEEKLY
     Route: 042
     Dates: start: 20160427
  8. CARBOPLATIN. [Concomitant]
     Active Substance: CARBOPLATIN
     Dosage: UNK UNK, THREE WEEKLY

REACTIONS (9)
  - Dyspnoea exertional [Not Recovered/Not Resolved]
  - Oral pain [Recovering/Resolving]
  - Dry mouth [Not Recovered/Not Resolved]
  - Insomnia [Recovered/Resolved]
  - Night sweats [Not Recovered/Not Resolved]
  - Pneumonia [Unknown]
  - Diarrhoea [Recovered/Resolved]
  - Mouth ulceration [Recovering/Resolving]
  - Increased appetite [Not Recovered/Not Resolved]

NARRATIVE: CASE EVENT DATE: 201605
